FAERS Safety Report 7353621-0 (Version None)
Quarter: 2011Q1

REPORT INFORMATION
  Report Type: 
  Country: None (occurrence: None)
  Receive Date: 20110310
  Receipt Date: 20110310
  Transmission Date: 20110831
  Serious: Yes (Life-Threatening, Other)
  Sender: FDA-Public Use
  Company Number: None

PATIENT
  Age: 68 Year
  Sex: Male
  Weight: 95.709 kg

DRUGS (1)
  1. ARICEPT [Suspect]
     Dosage: 1 PILL = 23 MG DAILY
     Dates: start: 20101210

REACTIONS (6)
  - DIZZINESS [None]
  - MUSCLE TWITCHING [None]
  - CONFUSIONAL STATE [None]
  - VOMITING [None]
  - DIARRHOEA [None]
  - VISION BLURRED [None]
